FAERS Safety Report 14672390 (Version 2)
Quarter: 2018Q1

REPORT INFORMATION
  Report Type: Spontaneous
  Country: RU (occurrence: RU)
  Receive Date: 20180323
  Receipt Date: 20180323
  Transmission Date: 20180509
  Serious: Yes (Hospitalization, Other)
  Sender: FDA-Public Use
  Company Number: RU-BAYER-2018-047692

PATIENT
  Age: 24 Year
  Sex: Female

DRUGS (1)
  1. QLAIRA [Suspect]
     Active Substance: DIENOGEST\ESTRADIOL VALERATE
     Indication: HORMONE LEVEL ABNORMAL
     Dosage: UNK
     Route: 048
     Dates: start: 201612, end: 2018

REACTIONS (9)
  - Suspected counterfeit product [None]
  - Off label use [None]
  - Product use in unapproved indication [None]
  - Metrorrhagia [None]
  - Endometritis [None]
  - Cyst [None]
  - Polyp [None]
  - Pancreatic enlargement [None]
  - Mass [None]
